FAERS Safety Report 5382083-8 (Version None)
Quarter: 2007Q3

REPORT INFORMATION
  Report Type: 
  Country: None (occurrence: None)
  Receive Date: 20070705
  Receipt Date: 20070621
  Transmission Date: 20080115
  Serious: Yes (Hospitalization)
  Sender: FDA-Public Use
  Company Number: RS-AMGEN-US232089

PATIENT
  Sex: Male
  Weight: 95 kg

DRUGS (4)
  1. ENBREL [Suspect]
     Indication: SPONDYLITIS
     Route: 058
     Dates: start: 20070416, end: 20070618
  2. DICLOFENAC [Concomitant]
     Indication: SPONDYLITIS
     Dosage: UNSPECIFIED
     Dates: start: 20070101, end: 20070614
  3. OMEPRAZOLE [Concomitant]
     Indication: GASTRIC DISORDER
     Dosage: UNSPECIFIED
     Dates: start: 20070503, end: 20070614
  4. OMEPRAZOLE [Concomitant]
     Dosage: UNSPECIFIED
     Dates: start: 20070625

REACTIONS (1)
  - VERTIGO [None]
